FAERS Safety Report 19101543 (Version 1)
Quarter: 2021Q2

REPORT INFORMATION
  Report Type: Spontaneous
  Country: US (occurrence: US)
  Receive Date: 20210406
  Receipt Date: 20210406
  Transmission Date: 20210717
  Serious: Yes (Other)
  Sender: FDA-Public Use
  Company Number: None

PATIENT
  Sex: Female
  Weight: 87.77 kg

DRUGS (2)
  1. BLISOVI FE 1/20 [Suspect]
     Active Substance: ETHINYL ESTRADIOL\NORETHINDRONE ACETATE
     Indication: HEAVY MENSTRUAL BLEEDING
     Route: 048
     Dates: start: 202002, end: 202004
  2. LOESTRIN 1/20 21 DAY [Suspect]
     Active Substance: ETHINYL ESTRADIOL\NORETHINDRONE ACETATE
     Indication: HEAVY MENSTRUAL BLEEDING
     Route: 048
     Dates: start: 202011, end: 202101

REACTIONS (4)
  - Weight increased [None]
  - Muscle spasms [None]
  - Dysphoria [None]
  - Product substitution issue [None]
